FAERS Safety Report 7648492-9 (Version None)
Quarter: 2011Q3

REPORT INFORMATION
  Report Type: 
  Country: None (occurrence: None)
  Receive Date: 20110801
  Receipt Date: 20110722
  Transmission Date: 20111222
  Serious: Yes (Life-Threatening)
  Sender: FDA-Public Use
  Company Number: CA-GILEAD-E2B_00001345

PATIENT
  Age: 76 Year
  Sex: Female
  Weight: 56.7 kg

DRUGS (3)
  1. AMBRISENTAN [Suspect]
     Indication: SCLERODERMA
  2. AMBRISENTAN [Suspect]
     Indication: PULMONARY ARTERIAL HYPERTENSION
     Route: 065
     Dates: start: 20110601, end: 20110625
  3. LASIX [Concomitant]
     Indication: RIGHT VENTRICULAR FAILURE

REACTIONS (6)
  - FLUID RETENTION [None]
  - DYSPNOEA [None]
  - PAIN IN EXTREMITY [None]
  - ABASIA [None]
  - OEDEMA [None]
  - HYDRAEMIA [None]
